FAERS Safety Report 7874207-5 (Version None)
Quarter: 2011Q4

REPORT INFORMATION
  Report Type: 
  Country: None (occurrence: None)
  Receive Date: 20111030
  Receipt Date: 20110517
  Transmission Date: 20120403
  Serious: No
  Sender: FDA-Public Use
  Company Number: US-AMGEN-USASP2011025474

PATIENT
  Sex: Male
  Weight: 83.447 kg

DRUGS (6)
  1. TESTIM [Concomitant]
     Dosage: 50 MG, UNK
  2. MULTI-VITAMINS [Concomitant]
     Dosage: UNK
     Route: 048
  3. LOVASTATIN [Concomitant]
     Dosage: 20 MG, UNK
     Route: 048
  4. TRICOR [Concomitant]
     Dosage: 145 MG, UNK
     Route: 048
  5. ENBREL [Suspect]
     Indication: PRODUCT USED FOR UNKNOWN INDICATION
     Dosage: 50 MG, QWK
     Route: 058
  6. LIPITOR [Concomitant]
     Dosage: 10 MG, UNK
     Route: 048

REACTIONS (1)
  - NASOPHARYNGITIS [None]
